FAERS Safety Report 10395250 (Version 2)
Quarter: 2014Q2

REPORT INFORMATION
  Report Type: Spontaneous
  Country: US (occurrence: None)
  Receive Date: 20130328
  Receipt Date: 20140604
  Transmission Date: 20141212
  Serious: Yes (Hospitalization)
  Sender: FDA-Public Use
  Company Number: 20120329CINRY2793

PATIENT
  Age: 45 Year
  Sex: Female

DRUGS (17)
  1. CINRYZE [Suspect]
     Indication: HEREDITARY ANGIOEDEMA
     Dosage: 2000 UNIT, 1 IN 3 D, INTRAVENOUS?
     Route: 042
     Dates: start: 2007
  2. CINRYZE [Suspect]
     Indication: PROPHYLAXIS
     Dosage: 2000 UNIT, 1 IN 3 D, INTRAVENOUS?
     Route: 042
     Dates: start: 2007
  3. METFORMIN (METFORMIN) [Concomitant]
  4. CATAPRES (COMBIPRESAN) [Concomitant]
  5. DICYCLOMINE (DICYCLOVERINE) [Concomitant]
  6. LOVAZA [Concomitant]
  7. FLEXERIL (CYCLOBENZAPRINE HYDROCHLORIDE) [Concomitant]
  8. GLYBURIDE (GLIBENCLAMIDE) [Concomitant]
  9. LYRICA (PREGABALIN) [Concomitant]
  10. PAXIL CR (PAROXETINE HYDROCHLORIDE) [Concomitant]
  11. OXYCODONE [Concomitant]
  12. PROTONIX (PANTOPRAZOLE) [Concomitant]
  13. SPIRONOLACTONE (SPIRONOLACTONE) [Concomitant]
  14. TOPROL XL (METOPROLOL SUCCINATE) (100 MILLIGRAM) (METOPROLOL SUCCINATE) [Concomitant]
  15. ULTRAM (TRAMADOL HYDROCHLORIDE) [Concomitant]
  16. BENADRYL (DIPHENHYDRAMINE HYDROCHLORIDE) [Concomitant]
  17. MULTIVITAMIN [Concomitant]

REACTIONS (9)
  - Swelling [None]
  - Nausea [None]
  - Infusion related reaction [None]
  - Vomiting [None]
  - Angioedema [None]
  - Off label use [None]
  - Therapy change [None]
  - Therapy change [None]
  - Hereditary angioedema [None]
